FAERS Safety Report 13081580 (Version 4)
Quarter: 2017Q2

REPORT INFORMATION
  Report Type: Spontaneous
  Country: US (occurrence: US)
  Receive Date: 20170103
  Receipt Date: 20170403
  Transmission Date: 20170830
  Serious: Yes (Hospitalization)
  Sender: FDA-Public Use
  Company Number: US-PFIZER INC-2016594834

PATIENT
  Age: 78 Year
  Sex: Female
  Weight: 73 kg

DRUGS (5)
  1. AMIODARONE [Concomitant]
     Active Substance: AMIODARONE
     Indication: BLOOD PRESSURE INADEQUATELY CONTROLLED
     Dosage: 1200 MG, 1X/DAY
     Dates: start: 20170121
  2. TIKOSYN [Suspect]
     Active Substance: DOFETILIDE
     Dosage: 500 UG, 2X/DAY
     Route: 048
     Dates: start: 20161206
  3. METOPROLOL TARTRATE. [Concomitant]
     Active Substance: METOPROLOL TARTRATE
     Dosage: 50 MG, 2X/DAY
     Route: 048
     Dates: start: 20170110
  4. METOPROLOL TARTRATE. [Concomitant]
     Active Substance: METOPROLOL TARTRATE
     Indication: HEART RATE IRREGULAR
     Dosage: 25 MG, DAILY
     Route: 048
     Dates: start: 20161020
  5. TIKOSYN [Suspect]
     Active Substance: DOFETILIDE
     Indication: HEART RATE IRREGULAR
     Dosage: 250 UG, 2X/DAY
     Route: 048
     Dates: start: 20161020

REACTIONS (3)
  - Palpitations [Unknown]
  - Heart rate irregular [Unknown]
  - Malaise [Unknown]

NARRATIVE: CASE EVENT DATE: 2016
